FAERS Safety Report 10077445 (Version 1)
Quarter: 2014Q2

REPORT INFORMATION
  Report Type: Spontaneous
  Country: US (occurrence: US)
  Receive Date: 20140414
  Receipt Date: 20140414
  Transmission Date: 20141212
  Serious: Yes (Other)
  Sender: FDA-Public Use
  Company Number: US-TEVA-475086USA

PATIENT
  Sex: Female
  Weight: 81.72 kg

DRUGS (2)
  1. ACTIQ [Suspect]
     Indication: PRODUCT USED FOR UNKNOWN INDICATION
     Dates: end: 2013
  2. METHADONE [Concomitant]
     Indication: PAIN
     Dosage: 160 MILLIGRAM DAILY;
     Route: 048
     Dates: start: 1997

REACTIONS (3)
  - Drug withdrawal syndrome [Unknown]
  - Arthralgia [Unknown]
  - Off label use [Unknown]
